FAERS Safety Report 10698182 (Version 1)
Quarter: 2014Q4

REPORT INFORMATION
  Report Type: Spontaneous
  Country: US (occurrence: None)
  Receive Date: 20141223
  Receipt Date: 20141223
  Transmission Date: 20150529
  Serious: No
  Sender: FDA-Public Use
  Company Number: 1000072004

PATIENT
  Sex: Female

DRUGS (1)
  1. LINZESS [Suspect]
     Active Substance: LINACLOTIDE
     Indication: CONSTIPATION
     Dates: start: 20141027, end: 20141027

REACTIONS (3)
  - Drug ineffective [None]
  - Intentional product misuse [None]
  - Intentional overdose [None]

NARRATIVE: CASE EVENT DATE: 20141027
